FAERS Safety Report 20054452 (Version 2)
Quarter: 2022Q1

REPORT INFORMATION
  Report Type: Report from Study
  Country: US (occurrence: US)
  Receive Date: 20211110
  Receipt Date: 20220128
  Transmission Date: 20220424
  Serious: No
  Sender: FDA-Public Use
  Company Number: US-NOVARTISTESTPH-NVSC2021US251810

PATIENT
  Sex: Female

DRUGS (1)
  1. COSENTYX [Suspect]
     Active Substance: SECUKINUMAB
     Indication: Psoriasis
     Dosage: 300 MG (QW FOR 5 WEEKS AND THEN Q4W)
     Route: 058
     Dates: start: 202102

REACTIONS (3)
  - Osteoarthritis [Unknown]
  - Pain in extremity [Unknown]
  - Arthralgia [Unknown]
